FAERS Safety Report 7811259-2 (Version None)
Quarter: 2011Q4

REPORT INFORMATION
  Report Type: 
  Country: None (occurrence: None)
  Receive Date: 20111013
  Receipt Date: 20111010
  Transmission Date: 20120403
  Serious: Yes (Hospitalization)
  Sender: FDA-Public Use
  Company Number: DE-SANOFI-AVENTIS-2009SA010541

PATIENT
  Age: 54 Year
  Sex: Female
  Weight: 90 kg

DRUGS (11)
  1. PANTOPRAZOLE SODIUM [Concomitant]
     Dosage: PREMEDICATION ALL CYCLES
     Route: 048
  2. SIMVASTATIN [Concomitant]
  3. DOCETAXEL [Suspect]
     Indication: BREAST CANCER
     Route: 041
     Dates: start: 20091125, end: 20091125
  4. DEXAMETHASONE [Concomitant]
     Dosage: PREMEDICATION ALL CYCLES, IV/PO
  5. ONDANSETRON [Concomitant]
     Dosage: PREMEDICATION ALL CYCLES, IV/PO
  6. UNACID [Concomitant]
     Route: 048
     Dates: start: 20091104, end: 20091108
  7. IBUPROFEN [Concomitant]
     Dates: start: 20091205, end: 20091206
  8. LEVOTHYROXINE SODIUM [Concomitant]
     Indication: HYPOTHYROIDISM
     Route: 048
  9. AMOXICILLIN [Concomitant]
     Indication: INFECTION
     Route: 048
     Dates: start: 20091007, end: 20091014
  10. IBUPROFEN [Concomitant]
     Indication: PAIN
     Dates: start: 20090928, end: 20091204
  11. NEULASTA [Concomitant]
     Dates: start: 20091126

REACTIONS (8)
  - CRANIAL NERVE DISORDER [None]
  - DIPLOPIA [None]
  - BONE PAIN [None]
  - OEDEMA PERIPHERAL [None]
  - PARAESTHESIA [None]
  - VOMITING [None]
  - VISUAL IMPAIRMENT [None]
  - EYE MOVEMENT DISORDER [None]
